FAERS Safety Report 9766045 (Version 2)
Quarter: 2014Q4

REPORT INFORMATION
  Report Type: Spontaneous
  Country: US (occurrence: US)
  Receive Date: 20131217
  Receipt Date: 20141217
  Transmission Date: 20150529
  Serious: No
  Sender: FDA-Public Use
  Company Number: US-GLAXOSMITHKLINE-A1016451A

PATIENT

DRUGS (4)
  1. ASPIRIN. [Concomitant]
     Active Substance: ASPIRIN
  2. LEVOTHYROXINE [Concomitant]
     Active Substance: LEVOTHYROXINE
  3. VOTRIENT [Suspect]
     Active Substance: PAZOPANIB HYDROCHLORIDE
     Indication: LUNG NEOPLASM MALIGNANT
     Dosage: TAKES FOUR 200MG TABS FOR 800MG DAILY DOSEDOSE AT DISCONTINUATION WAS 600 MG.
     Route: 048
     Dates: start: 20130208, end: 20140319
  4. SIMVASTATIN. [Concomitant]
     Active Substance: SIMVASTATIN

REACTIONS (5)
  - Glossodynia [Unknown]
  - Oral pain [Unknown]
  - Blood pressure increased [Unknown]
  - Fatigue [Unknown]
  - Stress [Unknown]

NARRATIVE: CASE EVENT DATE: 2013
